FAERS Safety Report 4908927-9 (Version None)
Quarter: 2006Q1

REPORT INFORMATION
  Report Type: 
  Country: None (occurrence: None)
  Receive Date: 20060209
  Receipt Date: 20060131
  Transmission Date: 20060701
  Serious: Yes (Hospitalization)
  Sender: FDA-Public Use
  Company Number: 2005BI021539

PATIENT
  Age: 56 Year
  Sex: Female

DRUGS (13)
  1. AVONEX LIQUID [Suspect]
     Indication: MULTIPLE SCLEROSIS
     Dosage: 30 UG; QW; IM
     Route: 031
     Dates: start: 20051113
  2. BACLOFEN [Concomitant]
  3. TAMOXIFEN CITRATE [Concomitant]
  4. COUMADIN [Concomitant]
  5. VITAMIN B COMPLEX CAP [Concomitant]
  6. VITAMINS [Concomitant]
  7. CALCIUM GLUCONATE [Concomitant]
  8. GREEN TEA [Concomitant]
  9. ASCORBIC ACID [Concomitant]
  10. VITAMIN E [Concomitant]
  11. VICODIN [Concomitant]
  12. MOTRIN [Concomitant]
  13. TYLENOL (CAPLET) [Concomitant]

REACTIONS (6)
  - ASTHENIA [None]
  - CONDITION AGGRAVATED [None]
  - MULTIPLE SCLEROSIS [None]
  - MUSCLE SPASTICITY [None]
  - PAIN [None]
  - URINARY TRACT INFECTION [None]
